FAERS Safety Report 20969577 (Version 5)
Quarter: 2022Q3

REPORT INFORMATION
  Report Type: Spontaneous
  Country: JP (occurrence: JP)
  Receive Date: 20220616
  Receipt Date: 20220715
  Transmission Date: 20221027
  Serious: Yes (Hospitalization, Other)
  Sender: FDA-Public Use
  Company Number: JP-MSD-2206JPN001463J

PATIENT
  Age: 79 Year
  Sex: Male
  Weight: 51 kg

DRUGS (3)
  1. KEYTRUDA [Suspect]
     Active Substance: PEMBROLIZUMAB
     Indication: Gingival cancer
     Dosage: 200 MILLIGRAM, Q3W
     Route: 041
     Dates: start: 20210510, end: 20210621
  2. CISPLATIN [Suspect]
     Active Substance: CISPLATIN
     Indication: Gingival cancer
     Dosage: UNK
     Route: 065
     Dates: start: 20210510
  3. FLUOROURACIL [Suspect]
     Active Substance: FLUOROURACIL
     Indication: Gingival cancer
     Dosage: UNK
     Route: 065
     Dates: start: 20210510

REACTIONS (4)
  - Device related infection [Unknown]
  - Malignant neoplasm progression [Unknown]
  - Pulmonary tuberculosis [Recovered/Resolved]
  - Rash [Recovering/Resolving]

NARRATIVE: CASE EVENT DATE: 20210621
